FAERS Safety Report 10537229 (Version 1)
Quarter: 2014Q4

REPORT INFORMATION
  Report Type: Spontaneous
  Country: CN (occurrence: CN)
  Receive Date: 20141023
  Receipt Date: 20141023
  Transmission Date: 20150529
  Serious: Yes (Hospitalization)
  Sender: FDA-Public Use
  Company Number: CN-PFIZER INC-2014290270

PATIENT
  Age: 59 Year
  Sex: Male
  Weight: 56 kg

DRUGS (2)
  1. MS CONTIN [Suspect]
     Active Substance: MORPHINE SULFATE
     Indication: CANCER PAIN
     Dosage: 10 MG, DAILY
     Route: 048
     Dates: start: 201404
  2. MS CONTIN [Suspect]
     Active Substance: MORPHINE SULFATE
     Dosage: 20 MG, 2X/DAY
     Route: 048
     Dates: start: 20140601, end: 20140606

REACTIONS (5)
  - Electrolyte imbalance [Not Recovered/Not Resolved]
  - Pain [Unknown]
  - Vomiting [Unknown]
  - Nausea [Not Recovered/Not Resolved]
  - Vomiting [Unknown]

NARRATIVE: CASE EVENT DATE: 201404
